FAERS Safety Report 8393461-7 (Version None)
Quarter: 2012Q2

REPORT INFORMATION
  Report Type: 
  Country: None (occurrence: None)
  Receive Date: 20120529
  Receipt Date: 20120523
  Transmission Date: 20120825
  Serious: Yes (Hospitalization)
  Sender: FDA-Public Use
  Company Number: US-TEVA-339817USA

PATIENT
  Sex: Female

DRUGS (2)
  1. IRBESARTAN [Suspect]
     Indication: BLOOD PRESSURE
     Dates: end: 20120518
  2. PREDNISONE [Concomitant]
     Indication: POLYMYALGIA RHEUMATICA

REACTIONS (5)
  - TRANSIENT GLOBAL AMNESIA [None]
  - DIZZINESS [None]
  - FEELING ABNORMAL [None]
  - BLOOD PRESSURE INCREASED [None]
  - HYPOTENSION [None]
